FAERS Safety Report 11283067 (Version 1)
Quarter: 2015Q3

REPORT INFORMATION
  Report Type: Spontaneous
  Country: US (occurrence: None)
  Receive Date: 20150716
  Receipt Date: 20150716
  Transmission Date: 20151125
  Serious: Yes (Other)
  Sender: FDA-Public Use
  Company Number: None

PATIENT
  Age: 63 Year
  Sex: Male
  Weight: 90.72 kg

DRUGS (9)
  1. PROAIR RESPICLICK [Suspect]
     Active Substance: ALBUTEROL SULFATE
     Indication: ASTHMA
     Route: 055
     Dates: start: 20150630, end: 20150712
  2. ADVAIR HFA [Concomitant]
     Active Substance: FLUTICASONE PROPIONATE\SALMETEROL XINAFOATE
  3. ADVIL [Concomitant]
     Active Substance: IBUPROFEN
  4. TURMERIC [Concomitant]
     Active Substance: TURMERIC
  5. LUTEIN [Concomitant]
     Active Substance: LUTEIN
  6. GLUCOSAMINE CHONDROITIN SUPPLEMENTS [Concomitant]
  7. SAW PALMETTO [Concomitant]
     Active Substance: SAW PALMETTO
  8. IRON [Concomitant]
     Active Substance: IRON
  9. ZINC [Concomitant]
     Active Substance: ZINC\ZINC CHLORIDE

REACTIONS (5)
  - Chest discomfort [None]
  - Dyspnoea [None]
  - Lung disorder [None]
  - Drug effect incomplete [None]
  - Condition aggravated [None]

NARRATIVE: CASE EVENT DATE: 20150712
